FAERS Safety Report 5128573-4 (Version None)
Quarter: 2006Q4

REPORT INFORMATION
  Report Type: 
  Country: None (occurrence: None)
  Receive Date: 20061017
  Receipt Date: 20060928
  Transmission Date: 20070319
  Serious: Yes (Hospitalization)
  Sender: FDA-Public Use
  Company Number: FR-GLAXOSMITHKLINE-B0440257A

PATIENT
  Age: 80 Year
  Sex: Female

DRUGS (6)
  1. DEROXAT [Suspect]
     Dosage: 20MG PER DAY
     Route: 048
     Dates: start: 20060904, end: 20060909
  2. LORAZEPAM [Concomitant]
     Dosage: 1MG PER DAY
     Route: 048
  3. MAGNE B6 [Concomitant]
     Dosage: 3TAB PER DAY
     Route: 048
  4. FONLIPOL [Concomitant]
     Indication: LIPID METABOLISM DISORDER
     Dosage: 1600MG PER DAY
     Route: 048
  5. CORDARONE [Concomitant]
     Dosage: 100MG PER DAY
     Route: 048
  6. FORLAX [Concomitant]
     Dosage: 10G PER DAY
     Route: 048

REACTIONS (8)
  - DIARRHOEA [None]
  - DYSPEPSIA [None]
  - HYPERHIDROSIS [None]
  - HYPONATRAEMIA [None]
  - LOSS OF CONSCIOUSNESS [None]
  - MALAISE [None]
  - NAUSEA [None]
  - VOMITING [None]
